FAERS Safety Report 7061075-7 (Version None)
Quarter: 2010Q4

REPORT INFORMATION
  Report Type: 
  Country: None (occurrence: None)
  Receive Date: 20101026
  Receipt Date: 20101014
  Transmission Date: 20110411
  Serious: Yes (Other)
  Sender: FDA-Public Use
  Company Number: US-PFIZER INC-2010113299

PATIENT
  Sex: Female
  Weight: 73.469 kg

DRUGS (13)
  1. SUTENT [Suspect]
     Indication: METASTATIC RENAL CELL CARCINOMA
     Dosage: 12.5 MG, 2X/DAY, FOR 28 DAYS EVERY 42 DAYS
     Dates: start: 20100820
  2. AMLODIPINE [Concomitant]
     Dosage: UNK
  3. DOXAZOSIN [Concomitant]
     Dosage: UNK
  4. DURAGESIC-100 [Concomitant]
     Dosage: UNK
     Dates: end: 20100902
  5. AMBIEN [Concomitant]
     Dosage: UNK
     Dates: end: 20100902
  6. PROMETHAZINE HYDROCHLORIDE [Concomitant]
     Dosage: UNK
     Dates: end: 20100902
  7. NYSTATIN [Concomitant]
     Dosage: UNK
  8. ZOFRAN [Concomitant]
     Dosage: UNK
  9. PANTOPRAZOLE [Concomitant]
     Dosage: UNK
  10. PAROXETINE [Concomitant]
     Dosage: UNK
  11. DARVOCET-N 100 [Concomitant]
     Dosage: UNK
  12. SOLIFENACIN [Concomitant]
     Dosage: UNK
  13. SOTALOL [Concomitant]
     Dosage: UNK

REACTIONS (1)
  - SKIN EXFOLIATION [None]
